FAERS Safety Report 4742122-1 (Version None)
Quarter: 2005Q3

REPORT INFORMATION
  Report Type: 
  Country: None (occurrence: None)
  Receive Date: 20050808
  Receipt Date: 20050727
  Transmission Date: 20060218
  Serious: Yes (Hospitalization, Other)
  Sender: FDA-Public Use
  Company Number: USA030639041

PATIENT
  Age: 46 Year
  Sex: Female

DRUGS (1)
  1. PROZAC [Suspect]
     Indication: DEPRESSION
     Dosage: 20 MG/1 DAY
     Dates: start: 20020901

REACTIONS (11)
  - ABDOMINAL DISTENSION [None]
  - ABDOMINAL TENDERNESS [None]
  - ADNEXA UTERI PAIN [None]
  - AMENORRHOEA [None]
  - ENDOMETRIOSIS [None]
  - FALLOPIAN TUBE DISORDER [None]
  - FEELING ABNORMAL [None]
  - OVARIAN ENLARGEMENT [None]
  - PAIN [None]
  - UTERINE ENLARGEMENT [None]
  - UTERINE PAIN [None]
